FAERS Safety Report 17124171 (Version 4)
Quarter: 2022Q3

REPORT INFORMATION
  Report Type: Report from Study
  Country: US (occurrence: US)
  Receive Date: 20191206
  Receipt Date: 20220808
  Transmission Date: 20221026
  Serious: Yes (Other)
  Sender: FDA-Public Use
  Company Number: US-SHIRE-US201941191

PATIENT
  Sex: Female

DRUGS (2)
  1. ICATIBANT [Suspect]
     Active Substance: ICATIBANT ACETATE
     Indication: Hereditary angioedema
     Dosage: 30 MILLIGRAM
     Route: 058
     Dates: start: 20120823
  2. ICATIBANT [Suspect]
     Active Substance: ICATIBANT ACETATE
     Indication: Hereditary angioedema
     Dosage: 30 MILLIGRAM
     Route: 058
     Dates: start: 20120823

REACTIONS (7)
  - Cataract [Unknown]
  - Meniscus injury [Unknown]
  - Hereditary angioedema [Unknown]
  - Drug ineffective [Unknown]
  - Breast mass [Not Recovered/Not Resolved]
  - Scar [Recovered/Resolved]
  - Expired product administered [Recovered/Resolved]
